FAERS Safety Report 10377649 (Version 1)
Quarter: 2014Q3

REPORT INFORMATION
  Report Type: Report from Study
  Country: US (occurrence: US)
  Receive Date: 20140812
  Receipt Date: 20140812
  Transmission Date: 20150326
  Serious: Yes (Hospitalization)
  Sender: FDA-Public Use
  Company Number: PHEH2014US015595

PATIENT
  Age: 14 Year
  Sex: Female
  Weight: 44.44 kg

DRUGS (6)
  1. AZITHROMYCIN [Concomitant]
     Active Substance: AZITHROMYCIN ANHYDROUS
     Dosage: UNK
  2. TOBI PODHALER [Suspect]
     Active Substance: TOBRAMYCIN
     Dosage: 4 DF, UNK
     Route: 055
     Dates: start: 201402
  3. COLISTIN [Concomitant]
     Active Substance: COLISTIN
     Dosage: UNK
  4. TOBI PODHALER [Suspect]
     Active Substance: TOBRAMYCIN
     Indication: CYSTIC FIBROSIS
     Dosage: 112 MG, BID
     Route: 055
     Dates: start: 201401, end: 201401
  5. PREDNISONE. [Concomitant]
     Active Substance: PREDNISONE
     Dosage: UNK
  6. CAYSTON [Concomitant]
     Active Substance: AZTREONAM
     Dosage: UNK

REACTIONS (3)
  - Respiratory tract congestion [Recovered/Resolved]
  - Cough [Recovered/Resolved]
  - Forced expiratory volume decreased [Recovered/Resolved]

NARRATIVE: CASE EVENT DATE: 201402
